FAERS Safety Report 6131697-6 (Version None)
Quarter: 2009Q1

REPORT INFORMATION
  Report Type: 
  Country: None (occurrence: None)
  Receive Date: 20090323
  Receipt Date: 20090316
  Transmission Date: 20090719
  Serious: Yes (Life-Threatening, Hospitalization, Other)
  Sender: FDA-Public Use
  Company Number: ENTC2009-0071

PATIENT
  Age: 80 Year
  Sex: Male

DRUGS (4)
  1. STALEVO 100 [Suspect]
     Dosage: 50 MG, BID; 2X50 MG FOUR TIMES DAILY
  2. ARICEPT [Concomitant]
  3. ZOLPIDEM [Concomitant]
  4. PAXIL [Concomitant]

REACTIONS (7)
  - APHAGIA [None]
  - APPARENT DEATH [None]
  - CHOKING [None]
  - CONVULSION [None]
  - CYANOSIS [None]
  - DRUG ABUSE [None]
  - GENERAL PHYSICAL HEALTH DETERIORATION [None]
